FAERS Safety Report 23106330 (Version 2)
Quarter: 2023Q4

REPORT INFORMATION
  Report Type: Spontaneous
  Country: JP (occurrence: JP)
  Receive Date: 20231025
  Receipt Date: 20231128
  Transmission Date: 20240110
  Serious: Yes (Other)
  Sender: FDA-Public Use
  Company Number: JP-TAKEDA-2023TJP013791

PATIENT
  Age: 66 Year
  Sex: Male

DRUGS (1)
  1. VECTIBIX [Suspect]
     Active Substance: PANITUMUMAB
     Indication: Colorectal cancer recurrent
     Dosage: 6 MILLIGRAM/KILOGRAM, Q2WK
     Route: 042

REACTIONS (2)
  - Deafness [Recovering/Resolving]
  - Tinnitus [Unknown]
